FAERS Safety Report 7000313-3 (Version None)
Quarter: 2010Q3

REPORT INFORMATION
  Report Type: 
  Country: None (occurrence: None)
  Receive Date: 20100920
  Receipt Date: 20100706
  Transmission Date: 20110219
  Serious: No
  Sender: FDA-Public Use
  Company Number: US-ASTRAZENECA-2010SE31611

PATIENT
  Sex: Male

DRUGS (2)
  1. SEROQUEL XR [Suspect]
     Indication: POST-TRAUMATIC STRESS DISORDER
     Route: 048
  2. SEROQUEL XR [Suspect]
     Indication: BIPOLAR DISORDER
     Route: 048

REACTIONS (7)
  - DEPRESSION [None]
  - DISORIENTATION [None]
  - DRUG DOSE OMISSION [None]
  - FEAR OF DEATH [None]
  - HALLUCINATION, VISUAL [None]
  - MALAISE [None]
  - VOMITING [None]
